FAERS Safety Report 4295021-6 (Version None)
Quarter: 2004Q1

REPORT INFORMATION
  Report Type: 
  Country: None (occurrence: None)
  Receive Date: 20040211
  Receipt Date: 20040130
  Transmission Date: 20041129
  Serious: Yes (Hospitalization, Disabling)
  Sender: FDA-Public Use
  Company Number: 04P-151-0249246-00

PATIENT
  Age: 72 Year
  Sex: Female

DRUGS (2)
  1. ISOPTIN [Suspect]
     Indication: ESSENTIAL HYPERTENSION
     Dosage: 240 MG, 1 IN 1 D, PER ORAL
     Route: 048
     Dates: start: 20031227, end: 20040116
  2. FLAMON RETARD (VERAPAMIL HYDROCHLORIDE) [Suspect]
     Indication: HYPERTENSION
     Dosage: 240 MG, 1 IN 1 D, PER ORAL
     Route: 048
     Dates: start: 20031213, end: 20031227

REACTIONS (2)
  - BRONCHITIS ACUTE [None]
  - DYSPNOEA [None]
